FAERS Safety Report 4887820-4 (Version None)
Quarter: 2006Q1

REPORT INFORMATION
  Report Type: 
  Country: None (occurrence: None)
  Receive Date: 20060123
  Receipt Date: 20050218
  Transmission Date: 20060701
  Serious: Yes (Hospitalization, Other)
  Sender: FDA-Public Use
  Company Number: US-MERCK-0502USA02729

PATIENT
  Age: 56 Year
  Sex: Male
  Weight: 111 kg

DRUGS (10)
  1. VIOXX [Suspect]
     Indication: ARTHRALGIA
     Route: 048
     Dates: start: 20020201, end: 20030101
  2. AMBIEN [Concomitant]
     Route: 065
  3. DOXAZOSIN MESYLATE [Concomitant]
     Route: 065
  4. LANTUS [Concomitant]
     Route: 065
  5. ZOCOR [Concomitant]
     Route: 048
  6. AGGRENOX [Concomitant]
     Route: 065
  7. CATAPRES [Concomitant]
     Route: 065
  8. NORVASC [Concomitant]
     Route: 065
  9. ACTOS [Concomitant]
     Route: 065
  10. LOTREL [Concomitant]
     Route: 065

REACTIONS (5)
  - CARDIAC DISORDER [None]
  - CHEST PAIN [None]
  - HEART RATE ABNORMAL [None]
  - MYOCARDIAL INFARCTION [None]
  - ROTATOR CUFF SYNDROME [None]
